FAERS Safety Report 6336544-5 (Version None)
Quarter: 2009Q3

REPORT INFORMATION
  Report Type: 
  Country: None (occurrence: None)
  Receive Date: 20090831
  Receipt Date: 20090831
  Transmission Date: 20100115
  Serious: Yes (Other)
  Sender: FDA-Public Use
  Company Number: None

PATIENT
  Age: 50 Year
  Sex: Female
  Weight: 59.8748 kg

DRUGS (2)
  1. MEDROXYPROGESTERONE ACETATE [Suspect]
     Indication: MENOPAUSAL SYMPTOMS
     Dosage: 150 MG PER ML 2 MONTHS IM
     Route: 030
  2. MEDROXYPROGESTERONE ACETATE [Suspect]
     Indication: VAGINAL HAEMORRHAGE
     Dosage: 150 MG PER ML 2 MONTHS IM
     Route: 030

REACTIONS (2)
  - DRUG INEFFECTIVE [None]
  - PRODUCT QUALITY ISSUE [None]
